FAERS Safety Report 8784341 (Version 2)
Quarter: 2012Q4

REPORT INFORMATION
  Report Type: 
  Country: US (occurrence: US)
  Receive Date: 20120913
  Receipt Date: 20121015
  Transmission Date: 20130627
  Serious: No
  Sender: FDA-Public Use
  Company Number: US-009507513-1209USA002347

PATIENT
  Age: 22 Year
  Sex: Female

DRUGS (2)
  1. GANIRELIX ACETATE INJECTION [Suspect]
     Indication: BLOOD LUTEINISING HORMONE ABNORMAL
     Dosage: 250 Microgram, qd
     Route: 058
  2. FOLLISTIM [Concomitant]

REACTIONS (2)
  - Drug ineffective [Unknown]
  - Menstrual disorder [Unknown]
